FAERS Safety Report 6898143-6 (Version None)
Quarter: 2010Q3

REPORT INFORMATION
  Report Type: 
  Country: None (occurrence: None)
  Receive Date: 20100802
  Receipt Date: 20070907
  Transmission Date: 20110219
  Serious: No
  Sender: FDA-Public Use
  Company Number: US-PFIZER INC-2007076048

PATIENT
  Sex: Female
  Weight: 68 kg

DRUGS (3)
  1. LYRICA [Suspect]
     Indication: HERPES ZOSTER
     Dates: start: 20070904, end: 20070906
  2. VERAPAMIL [Concomitant]
  3. CYMBALTA [Concomitant]

REACTIONS (1)
  - URINARY INCONTINENCE [None]
